FAERS Safety Report 18361637 (Version 4)
Quarter: 2020Q4

REPORT INFORMATION
  Report Type: Spontaneous
  Country: US (occurrence: US)
  Receive Date: 20201008
  Receipt Date: 20201110
  Transmission Date: 20210114
  Serious: Yes (Other)
  Sender: FDA-Public Use
  Company Number: US-PFIZER INC-2020383962

PATIENT
  Age: 72 Year
  Sex: Female
  Weight: 92 kg

DRUGS (2)
  1. XELJANZ XR [Suspect]
     Active Substance: TOFACITINIB CITRATE
     Dosage: 11 MG, DAILY (11MG PUT IN MOUTH SWALLOWED WITH COFFEE OR WATER ON AN EMPTY STOMACH PER DAY)
     Route: 048
     Dates: start: 202003, end: 2020
  2. XELJANZ XR [Suspect]
     Active Substance: TOFACITINIB CITRATE
     Indication: RHEUMATOID ARTHRITIS
     Dosage: 11 MG, 1X/DAY (ONCE A DAY IN THE MORNING USUALLY ON EMPTY STOMACH)
     Route: 048
     Dates: start: 201810

REACTIONS (5)
  - Finger deformity [Not Recovered/Not Resolved]
  - Limb injury [Unknown]
  - Drug ineffective [Unknown]
  - Nervous system disorder [Unknown]
  - Intentional product misuse [Unknown]

NARRATIVE: CASE EVENT DATE: 202009
